FAERS Safety Report 8934284 (Version 2)
Quarter: 2012Q4

REPORT INFORMATION
  Report Type: 
  Country: AU (occurrence: AU)
  Receive Date: 20121129
  Receipt Date: 20121219
  Transmission Date: 20130627
  Serious: Yes (Other)
  Sender: FDA-Public Use
  Company Number: AU-ROCHE-1158428

PATIENT
  Sex: Female

DRUGS (4)
  1. CELLCEPT [Suspect]
     Indication: SYSTEMIC LUPUS ERYTHEMATOSUS
     Route: 065
  2. PREDNISONE [Suspect]
     Indication: SYSTEMIC LUPUS ERYTHEMATOSUS
     Route: 065
  3. CYCLOSPORINE [Concomitant]
  4. METHYL PREDNISOLONE SODIUM SUCCINATE [Concomitant]

REACTIONS (6)
  - Pneumonitis [Unknown]
  - Pleurisy [Unknown]
  - Drug ineffective [Unknown]
  - Pleural effusion [Unknown]
  - Weight increased [Unknown]
  - Cushingoid [Unknown]
